FAERS Safety Report 8514658-9 (Version None)
Quarter: 2012Q3

REPORT INFORMATION
  Report Type: 
  Country: None (occurrence: None)
  Receive Date: 20120717
  Receipt Date: 20120709
  Transmission Date: 20120928
  Serious: Yes (Hospitalization)
  Sender: FDA-Public Use
  Company Number: US-BAYER-2012-069338

PATIENT
  Age: 51 Year
  Sex: Female
  Weight: 115.65 kg

DRUGS (8)
  1. YAZ [Suspect]
     Indication: MENOPAUSAL SYMPTOMS
     Dosage: UNK
     Dates: start: 20070101, end: 20100719
  2. YAZ [Suspect]
     Indication: POLYCYSTIC OVARIES
  3. DROSPIRENONE AND ETHINYL ESTRADIOL [Suspect]
     Indication: CONTRACEPTION
     Dosage: UNK
     Dates: start: 20100914, end: 20120218
  4. DROSPIRENONE AND ETHINYL ESTRADIOL [Suspect]
     Indication: MENOPAUSAL SYMPTOMS
  5. DROSPIRENONE AND ETHINYL ESTRADIOL [Suspect]
     Indication: POLYCYSTIC OVARIES
  6. YAZ [Suspect]
     Indication: CONTRACEPTION
     Dosage: UNK
     Dates: start: 20060101
  7. RESTASIS [Concomitant]
     Dosage: UNK
  8. FLUOXETINE HCL [Concomitant]
     Dosage: UNK

REACTIONS (7)
  - DEEP VEIN THROMBOSIS [None]
  - VENTRICULAR HYPERTROPHY [None]
  - CHEST PAIN [None]
  - PULMONARY EMBOLISM [None]
  - DYSPNOEA [None]
  - ANXIETY [None]
  - OEDEMA PERIPHERAL [None]
